FAERS Safety Report 26023555 (Version 1)
Quarter: 2025Q4

REPORT INFORMATION
  Report Type: Spontaneous
  Country: US (occurrence: US)
  Receive Date: 20251111
  Receipt Date: 20251111
  Transmission Date: 20260117
  Serious: No
  Sender: ROCHE
  Company Number: US-ROCHE-10000426438

PATIENT

DRUGS (4)
  1. MOSUNETUZUMAB [Suspect]
     Active Substance: MOSUNETUZUMAB
     Indication: Follicular lymphoma refractory
     Route: 065
  2. RITUXIMAB [Suspect]
     Active Substance: RITUXIMAB
     Indication: Follicular lymphoma refractory
     Route: 065
  3. REVLIMID [Suspect]
     Active Substance: LENALIDOMIDE
     Indication: Follicular lymphoma refractory
     Route: 065
  4. TAZVERIK [Concomitant]
     Active Substance: TAZEMETOSTAT HYDROBROMIDE
     Route: 065

REACTIONS (6)
  - Night sweats [Unknown]
  - Fatigue [Unknown]
  - Pruritus [Unknown]
  - Liver disorder [Unknown]
  - Nausea [Unknown]
  - Vomiting [Unknown]
